FAERS Safety Report 5300646-2 (Version None)
Quarter: 2007Q1

REPORT INFORMATION
  Report Type: 
  Country: None (occurrence: None)
  Receive Date: 20070201
  Receipt Date: 20061012
  Transmission Date: 20070707
  Serious: No
  Sender: FDA-Public Use
  Company Number: 2006PV023112

PATIENT
  Age: 62 Year
  Sex: Female
  Weight: 139.2543 kg

DRUGS (4)
  1. BYETTA [Suspect]
     Indication: DIABETES MELLITUS NON-INSULIN-DEPENDENT
     Dosage: SEE IMAGE
     Route: 058
     Dates: start: 20060902, end: 20061001
  2. BYETTA [Suspect]
     Indication: DIABETES MELLITUS NON-INSULIN-DEPENDENT
     Dosage: SEE IMAGE
     Route: 058
     Dates: start: 20061002
  3. ACTOS [Concomitant]
  4. GLYBURIDE [Concomitant]

REACTIONS (6)
  - ASTHENIA [None]
  - BLOOD GLUCOSE DECREASED [None]
  - EARLY SATIETY [None]
  - HEART RATE INCREASED [None]
  - HUNGER [None]
  - TREMOR [None]
